FAERS Safety Report 5724419-1 (Version None)
Quarter: 2008Q2

REPORT INFORMATION
  Report Type: 
  Country: None (occurrence: None)
  Receive Date: 20080430
  Receipt Date: 20080417
  Transmission Date: 20081010
  Serious: Yes (Other)
  Sender: FDA-Public Use
  Company Number: US-PFIZER INC-2008036881

PATIENT
  Sex: Male

DRUGS (1)
  1. EXUBERA [Suspect]

REACTIONS (1)
  - MALAISE [None]
